FAERS Safety Report 15983619 (Version 3)
Quarter: 2019Q3

REPORT INFORMATION
  Report Type: Report from Study
  Country: US (occurrence: US)
  Receive Date: 20190220
  Receipt Date: 20190704
  Transmission Date: 20191004
  Serious: Yes (Hospitalization)
  Sender: FDA-Public Use
  Company Number: PHEH2019US007102

PATIENT
  Sex: Female

DRUGS (1)
  1. ENTRESTO [Suspect]
     Active Substance: SACUBITRIL\VALSARTAN
     Indication: CARDIAC FAILURE
     Dosage: UNK UNK, BID
     Route: 048

REACTIONS (11)
  - Contusion [Unknown]
  - Cough [Unknown]
  - Blood viscosity abnormal [Unknown]
  - Arthritis [Unknown]
  - Temperature intolerance [Unknown]
  - Dyspnoea [Unknown]
  - Head injury [Unknown]
  - Urinary tract infection [Unknown]
  - Swelling face [Unknown]
  - Pain [Unknown]
  - Dysphonia [Unknown]
